FAERS Safety Report 14242043 (Version 1)
Quarter: 2017Q4

REPORT INFORMATION
  Report Type: Spontaneous
  Country: US (occurrence: US)
  Receive Date: 20171201
  Receipt Date: 20171201
  Transmission Date: 20180321
  Serious: Yes (Other)
  Sender: FDA-Public Use
  Company Number: US-TEVA-2017-US-829943

PATIENT
  Age: 65 Year
  Sex: Male

DRUGS (21)
  1. PREDNISONE. [Suspect]
     Active Substance: PREDNISONE
     Indication: B-CELL LYMPHOMA
     Dosage: AS R-CHOP THERAPY
     Route: 065
     Dates: start: 2008
  2. RITUXIMAB. [Suspect]
     Active Substance: RITUXIMAB
     Indication: GRAFT VERSUS HOST DISEASE
     Dosage: 4 DOSES WEEKLY
     Route: 065
     Dates: start: 201202
  3. CYTARABINE. [Suspect]
     Active Substance: CYTARABINE
     Indication: SURGICAL PRECONDITIONING
     Route: 065
     Dates: start: 201003
  4. PREDNISONE. [Suspect]
     Active Substance: PREDNISONE
     Indication: GRAFT VERSUS HOST DISEASE
     Route: 065
     Dates: start: 201202
  5. CYCLOPHOSPHAMIDE. [Suspect]
     Active Substance: CYCLOPHOSPHAMIDE
     Indication: B-CELL LYMPHOMA
     Dosage: AS R-CHOP THERAPY
     Route: 065
     Dates: start: 2008
  6. ETOPOSIDE. [Suspect]
     Active Substance: ETOPOSIDE
     Indication: SURGICAL PRECONDITIONING
     Route: 065
     Dates: start: 201003
  7. VINCRISTINE [Suspect]
     Active Substance: VINCRISTINE
     Indication: B-CELL LYMPHOMA
     Dosage: AS R-CHOP THERAPY
     Route: 065
     Dates: start: 2008
  8. FLUDARABINE [Suspect]
     Active Substance: FLUDARABINE PHOSPHATE
     Indication: B-CELL LYMPHOMA
     Dosage: 25 MG/M2 (UNDER CLINICAL TRIAL)
     Route: 065
     Dates: start: 201508
  9. CARBOPLATIN. [Suspect]
     Active Substance: CARBOPLATIN
     Indication: B-CELL LYMPHOMA
     Dosage: AS R-ICE THERAPY
     Route: 065
  10. RITUXIMAB. [Suspect]
     Active Substance: RITUXIMAB
     Indication: B-CELL LYMPHOMA
     Dosage: AS R-ICE THERAPY
     Route: 065
  11. CYCLOPHOSPHAMIDE. [Suspect]
     Active Substance: CYCLOPHOSPHAMIDE
     Indication: SURGICAL PRECONDITIONING
     Route: 065
     Dates: start: 201003
  12. CYTARABINE. [Suspect]
     Active Substance: CYTARABINE
     Indication: B-CELL LYMPHOMA
     Route: 065
     Dates: start: 201012
  13. CYTOXAN [Suspect]
     Active Substance: CYCLOPHOSPHAMIDE
     Indication: B-CELL LYMPHOMA
     Dosage: 60 MG/KG (UNDER CLINICAL TRIAL)
     Route: 065
     Dates: start: 201508
  14. DOXORUBICIN [Suspect]
     Active Substance: DOXORUBICIN
     Indication: B-CELL LYMPHOMA
     Dosage: AS R-CHOP THERAPY
     Route: 065
     Dates: start: 2008
  15. METHOTREXATE. [Suspect]
     Active Substance: METHOTREXATE
     Indication: B-CELL LYMPHOMA
     Route: 065
     Dates: start: 201012
  16. RITUXIMAB. [Suspect]
     Active Substance: RITUXIMAB
     Indication: B-CELL LYMPHOMA
     Dosage: AS R-CHOP THERAPY
     Route: 065
     Dates: start: 2008
  17. CARMUSTINE [Suspect]
     Active Substance: CARMUSTINE
     Indication: SURGICAL PRECONDITIONING
     Route: 065
     Dates: start: 201003
  18. ETOPOSIDE. [Suspect]
     Active Substance: ETOPOSIDE
     Indication: B-CELL LYMPHOMA
     Dosage: AS R-ICE THERAPY
     Route: 065
  19. IFOSFAMIDE. [Suspect]
     Active Substance: IFOSFAMIDE
     Indication: B-CELL LYMPHOMA
     Dosage: AS R-ICE THERAPY
     Route: 065
  20. RITUXIMAB. [Suspect]
     Active Substance: RITUXIMAB
     Indication: SURGICAL PRECONDITIONING
     Dosage: ALONG WITH 200CGY TOTAL BODY IRRADIATION
     Route: 065
     Dates: start: 201102
  21. RITUXAN [Suspect]
     Active Substance: RITUXIMAB
     Indication: B-CELL LYMPHOMA
     Route: 065
     Dates: start: 201012

REACTIONS (1)
  - Coccidioidomycosis [Unknown]

NARRATIVE: CASE EVENT DATE: 201512
